FAERS Safety Report 23054907 (Version 1)
Quarter: 2023Q4

REPORT INFORMATION
  Report Type: Spontaneous
  Country: US (occurrence: None)
  Receive Date: 20231010
  Receipt Date: 20231010
  Transmission Date: 20240110
  Serious: Yes (Other)
  Sender: FDA-Public Use
  Company Number: None

PATIENT
  Age: 76 Year
  Sex: Male
  Weight: 78.75 kg

DRUGS (14)
  1. SYMPROIC [Suspect]
     Active Substance: NALDEMEDINE
     Indication: Constipation
     Dosage: OTHER QUANTITY : 1 TABLET(S);?FREQUENCY : DAILY;?
     Route: 048
     Dates: start: 20231009, end: 20231010
  2. GABAPENTIN [Concomitant]
     Active Substance: GABAPENTIN
  3. OXYCODONE HYDROCHLORIDE [Concomitant]
     Active Substance: OXYCODONE HYDROCHLORIDE
  4. DICLOFENAC SODIUM [Concomitant]
     Active Substance: DICLOFENAC\DICLOFENAC SODIUM
  5. PREDNISONE [Concomitant]
     Active Substance: PREDNISONE
  6. PRALUENT [Concomitant]
     Active Substance: ALIROCUMAB
  7. VALIUM [Concomitant]
     Active Substance: DIAZEPAM
  8. MIRTAZAPINE [Concomitant]
     Active Substance: MIRTAZAPINE
  9. DICYCLOMINE [Concomitant]
     Active Substance: DICYCLOMINE HYDROCHLORIDE
  10. FAMOTIDINE [Concomitant]
     Active Substance: FAMOTIDINE
  11. PANTOPRAZOLE SODIUM [Concomitant]
     Active Substance: PANTOPRAZOLE SODIUM
  12. MIRALAX [Concomitant]
     Active Substance: POLYETHYLENE GLYCOL 3350
  13. FISH OIL [Concomitant]
     Active Substance: FISH OIL
  14. VITAMINS [Concomitant]
     Active Substance: VITAMINS

REACTIONS (2)
  - Abdominal pain [None]
  - Abdominal pain upper [None]

NARRATIVE: CASE EVENT DATE: 20231009
